FAERS Safety Report 6461148-3 (Version None)
Quarter: 2009Q4

REPORT INFORMATION
  Report Type: 
  Country: None (occurrence: None)
  Receive Date: 20091109
  Receipt Date: 20091109
  Transmission Date: 20100525
  Serious: Yes (Hospitalization)
  Sender: FDA-Public Use
  Company Number: 2009AC000283

PATIENT
  Age: 59 Year
  Sex: Female

DRUGS (19)
  1. DIGOXIN [Suspect]
     Dosage: 0.125 MG; QD; PO
     Route: 048
     Dates: start: 20071114
  2. ULTRACET [Concomitant]
  3. LANTUS [Concomitant]
  4. PLAVIX [Concomitant]
  5. CHANTIX [Concomitant]
  6. DEPAKOTE [Concomitant]
  7. LOPID [Concomitant]
  8. MICRO-K [Concomitant]
  9. LASIX [Concomitant]
  10. XANAX [Concomitant]
  11. GENTAMICIN [Concomitant]
  12. PREMARINI [Concomitant]
  13. IMDUR [Concomitant]
  14. EFFEXOR [Concomitant]
  15. PREVACID [Concomitant]
  16. LANTUS [Concomitant]
  17. ATROVENT [Concomitant]
  18. ATIVAN [Concomitant]
  19. VERAPAMIL [Concomitant]

REACTIONS (24)
  - ABDOMINAL PAIN [None]
  - ANXIETY [None]
  - ATRIAL TACHYCARDIA [None]
  - BACK PAIN [None]
  - CONTUSION [None]
  - CYSTITIS [None]
  - DELUSION [None]
  - DEPRESSION [None]
  - DIABETES MELLITUS INADEQUATE CONTROL [None]
  - DIARRHOEA [None]
  - DISORIENTATION [None]
  - ECONOMIC PROBLEM [None]
  - FALL [None]
  - FATIGUE [None]
  - HALLUCINATION [None]
  - HYPONATRAEMIA [None]
  - INJURY [None]
  - INSOMNIA [None]
  - MULTIPLE DRUG OVERDOSE [None]
  - MYOCARDIAL INFARCTION [None]
  - TACHYCARDIA PAROXYSMAL [None]
  - THERAPEUTIC AGENT TOXICITY [None]
  - TROPONIN INCREASED [None]
  - VISUAL IMPAIRMENT [None]
